FAERS Safety Report 5017203-8 (Version None)
Quarter: 2006Q2

REPORT INFORMATION
  Report Type: 
  Country: None (occurrence: None)
  Receive Date: 20060414
  Receipt Date: 20060127
  Transmission Date: 20061013
  Serious: No
  Sender: FDA-Public Use
  Company Number: 2006SP000487

PATIENT
  Age: 64 Year
  Sex: Female
  Weight: 81.6475 kg

DRUGS (4)
  1. LUNESTA [Suspect]
     Indication: BIPOLAR DISORDER
     Dosage: 3 MG;1X;ORAL
     Route: 048
     Dates: start: 20060125, end: 20060125
  2. LUNESTA [Suspect]
     Indication: SLEEP DISORDER
     Dosage: 3 MG;1X;ORAL
     Route: 048
     Dates: start: 20060125, end: 20060125
  3. LAMOTRIGINE [Concomitant]
  4. SEROQUEL [Concomitant]

REACTIONS (2)
  - INITIAL INSOMNIA [None]
  - PRURITUS [None]
